FAERS Safety Report 17548386 (Version 1)
Quarter: 2020Q1

REPORT INFORMATION
  Report Type: Spontaneous
  Country: GB (occurrence: GB)
  Receive Date: 20200317
  Receipt Date: 20200317
  Transmission Date: 20200409
  Serious: Yes (Other)
  Sender: FDA-Public Use
  Company Number: GB-TEVA-2020-GB-1201713

PATIENT
  Age: 36 Year
  Sex: Male
  Weight: 85 kg

DRUGS (1)
  1. CLARITHROMYCIN. [Suspect]
     Active Substance: CLARITHROMYCIN
     Dosage: 1000 MG, FOR 5 DAYS
     Dates: start: 20200217, end: 20200222

REACTIONS (1)
  - Facial paralysis [Recovering/Resolving]
